FAERS Safety Report 18090022 (Version 11)
Quarter: 2025Q4

REPORT INFORMATION
  Report Type: Report from Study
  Country: EU (occurrence: EU)
  Receive Date: 20200730
  Receipt Date: 20251027
  Transmission Date: 20260118
  Serious: Yes (Death, Hospitalization, Other)
  Sender: TAKEDA
  Company Number: EU-JNJFOC-20200735431

PATIENT
  Age: 55 Year
  Sex: Female
  Weight: 81.3 kg

DRUGS (24)
  1. BORTEZOMIB [Suspect]
     Active Substance: BORTEZOMIB
     Indication: Plasma cell myeloma recurrent
     Dosage: 1 MICROGRAM/SQ. METER
     Dates: start: 20200423, end: 20200426
  2. BORTEZOMIB [Suspect]
     Active Substance: BORTEZOMIB
     Indication: Refractory cancer
     Dosage: UNK
  3. BORTEZOMIB [Suspect]
     Active Substance: BORTEZOMIB
     Indication: Plasma cell myeloma
  4. DEXAMETHASONE [Suspect]
     Active Substance: DEXAMETHASONE
     Indication: Plasma cell myeloma
     Dosage: 40 MILLIGRAM, QD
     Dates: start: 20200423, end: 20200426
  5. CISPLATIN [Suspect]
     Active Substance: CISPLATIN
     Indication: Plasma cell myeloma
     Dosage: 10 MILLIGRAM/SQ. METER, QD
     Dates: start: 20200423, end: 20200426
  6. CISPLATIN [Suspect]
     Active Substance: CISPLATIN
     Indication: Plasma cell myeloma
  7. ETOPOSIDE [Suspect]
     Active Substance: ETOPOSIDE
     Indication: Plasma cell myeloma
     Dosage: UNK
     Dates: start: 20200423, end: 20200426
  8. ETOPOSIDE [Suspect]
     Active Substance: ETOPOSIDE
     Indication: Plasma cell myeloma
  9. FLUDARABINE [Suspect]
     Active Substance: FLUDARABINE PHOSPHATE
     Indication: Plasma cell myeloma
     Dosage: 56.1 MILLIGRAM, QD
     Dates: start: 20181121, end: 20181123
  10. CYCLOPHOSPHAMIDE [Suspect]
     Active Substance: CYCLOPHOSPHAMIDE
     Indication: Plasma cell myeloma
     Dosage: 561 MILLIGRAM, QD
     Dates: start: 20181121, end: 20181123
  11. CYCLOPHOSPHAMIDE [Suspect]
     Active Substance: CYCLOPHOSPHAMIDE
     Dosage: 561 MILLIGRAM/SQ. METER, QD
     Dates: start: 20181121, end: 20181123
  12. CYCLOPHOSPHAMIDE [Suspect]
     Active Substance: CYCLOPHOSPHAMIDE
     Dosage: 400 MILLIGRAM/SQ. METER, QD
     Dates: start: 20200423, end: 20200426
  13. DOXORUBICIN HYDROCHLORIDE [Suspect]
     Active Substance: DOXORUBICIN HYDROCHLORIDE
     Indication: Plasma cell myeloma
     Dosage: 10 MILLIGRAM, QD
     Dates: start: 20200423, end: 20200426
  14. THALIDOMIDE [Suspect]
     Active Substance: THALIDOMIDE
     Indication: Plasma cell myeloma
     Dosage: 100 MILLIGRAM, QD
     Dates: start: 20200423, end: 20200426
  15. THALIDOMIDE [Suspect]
     Active Substance: THALIDOMIDE
     Indication: Plasma cell myeloma
  16. DOXORUBICIN [Suspect]
     Active Substance: DOXORUBICIN
     Indication: Plasma cell myeloma
     Dosage: 10 MILLIGRAM, QD
     Dates: start: 20200423, end: 20200426
  17. NEUPOGEN [Concomitant]
     Active Substance: FILGRASTIM
     Indication: Product used for unknown indication
     Dosage: 30 MEGA-INTERNATIONAL UNIT
     Dates: start: 20200317, end: 20200319
  18. NEUPOGEN [Concomitant]
     Active Substance: FILGRASTIM
     Dosage: 30 MEGA-INTERNATIONAL UNIT
     Dates: start: 20200402, end: 20200404
  19. NEUPOGEN [Concomitant]
     Active Substance: FILGRASTIM
     Dosage: 48 MEGA-INTERNATIONAL UNIT, QD
     Dates: start: 20200422, end: 20200422
  20. NEUPOGEN [Concomitant]
     Active Substance: FILGRASTIM
     Dosage: 30 MEGA-INTERNATIONAL UNIT, QD
     Dates: start: 20200423, end: 20200423
  21. POTASSIUM CHLORIDE [Concomitant]
     Active Substance: POTASSIUM CHLORIDE
     Indication: Hypokalaemia
     Dosage: UNK UNK, QD
     Dates: start: 20200427, end: 20200427
  22. COTRIMOXAZOLE [Concomitant]
     Active Substance: SULFAMETHOXAZOLE\TRIMETHOPRIM
     Indication: Infection prophylaxis
     Dosage: 3 DOSAGE FORM, 3/WEEK
     Dates: start: 20060710, end: 20200424
  23. COTRIMOXAZOLE [Concomitant]
     Active Substance: SULFAMETHOXAZOLE\TRIMETHOPRIM
     Dosage: UNK UNK, 1/WEEK
     Dates: start: 20060710, end: 20200424
  24. TRIMETHOPRIM [Concomitant]
     Active Substance: TRIMETHOPRIM
     Indication: Infection prophylaxis
     Dosage: 960 MILLIGRAM, 1/WEEK
     Dates: start: 20060710, end: 20200424

REACTIONS (3)
  - Septic shock [Fatal]
  - Pneumonia [Fatal]
  - Off label use [Unknown]

NARRATIVE: CASE EVENT DATE: 20200427
